FAERS Safety Report 18273463 (Version 1)
Quarter: 2020Q3

REPORT INFORMATION
  Report Type: Spontaneous
  Country: DE (occurrence: DE)
  Receive Date: 20200916
  Receipt Date: 20200916
  Transmission Date: 20201103
  Serious: Yes (Hospitalization, Other)
  Sender: FDA-Public Use
  Company Number: DE-MYLANLABS-2020M1078893

PATIENT
  Sex: Female

DRUGS (7)
  1. PHOSPHATE                          /01053101/ [Suspect]
     Active Substance: SODIUM PHOSPHATE\SODIUM PHOSPHATE, MONOBASIC
     Indication: PARENTERAL NUTRITION
     Dosage: 1 DOSAGE FORM, QD
     Route: 065
  2. CALCIUM [Suspect]
     Active Substance: CALCIUM
     Indication: PARENTERAL NUTRITION
     Dosage: 1 DOSAGE FORM, QD
     Route: 065
  3. MAGNESIUM [Suspect]
     Active Substance: MAGNESIUM
     Indication: PARENTERAL NUTRITION
     Dosage: 1 DOSAGE FORM, QD
     Route: 065
  4. POTASSIUM [Suspect]
     Active Substance: POTASSIUM
     Indication: PARENTERAL NUTRITION
     Dosage: 1 DOSAGE FORM, QD
     Route: 065
  5. SODIUM [Suspect]
     Active Substance: SODIUM
     Indication: PARENTERAL NUTRITION
     Dosage: 1 DOSAGE FORM, QD
     Route: 065
  6. CLINOLEIC [Suspect]
     Active Substance: OLIVE OIL\SOYBEAN OIL
     Indication: PARENTERAL NUTRITION
     Dosage: 1 DOSAGE FORM, QD
     Route: 065
  7. GLUCOSE 50% BAXTER [Suspect]
     Active Substance: DEXTROSE
     Indication: PARENTERAL NUTRITION
     Dosage: 1 DOSAGE FORM, QD
     Route: 065

REACTIONS (4)
  - Acinetobacter sepsis [Unknown]
  - Back pain [Unknown]
  - Headache [Unknown]
  - Product contamination microbial [Unknown]
